FAERS Safety Report 8109253-X (Version None)
Quarter: 2012Q1

REPORT INFORMATION
  Report Type: 
  Country: None (occurrence: None)
  Receive Date: 20120202
  Receipt Date: 20120126
  Transmission Date: 20120608
  Serious: Yes (Hospitalization)
  Sender: FDA-Public Use
  Company Number: US-TEVA-319414USA

PATIENT
  Sex: Male

DRUGS (1)
  1. CYPROHEPTADINE HCL [Suspect]
     Indication: DECREASED APPETITE

REACTIONS (2)
  - SEXUALLY INAPPROPRIATE BEHAVIOUR [None]
  - LIBIDO INCREASED [None]
